FAERS Safety Report 6447801-6 (Version None)
Quarter: 2009Q4

REPORT INFORMATION
  Report Type: 
  Country: None (occurrence: None)
  Receive Date: 20091120
  Receipt Date: 20090727
  Transmission Date: 20100525
  Serious: No
  Sender: FDA-Public Use
  Company Number: A0798832A

PATIENT
  Age: 60 Year
  Sex: Female

DRUGS (1)
  1. VERAMYST [Suspect]
     Dosage: 1SPR PER DAY
     Route: 045
     Dates: start: 20090720

REACTIONS (1)
  - DRUG INEFFECTIVE [None]
